FAERS Safety Report 15246408 (Version 2)
Quarter: 2018Q4

REPORT INFORMATION
  Report Type: Report from Study
  Country: IT (occurrence: IT)
  Receive Date: 20180806
  Receipt Date: 20181108
  Transmission Date: 20190204
  Serious: Yes (Hospitalization)
  Sender: FDA-Public Use
  Company Number: IT-MYLANLABS-2018M1058012

PATIENT
  Age: 62 Year
  Sex: Female

DRUGS (8)
  1. QUETIAPINA TEVA [Suspect]
     Active Substance: QUETIAPINE
     Indication: PSYCHOTIC DISORDER
     Dosage: 10 DF, TOTAL
     Route: 048
     Dates: start: 20180411, end: 20180411
  2. TRITTICO [Suspect]
     Active Substance: TRAZODONE HYDROCHLORIDE
     Indication: SEDATION
     Dosage: 10 DF, TOTAL
     Route: 048
     Dates: start: 20180411, end: 20180411
  3. FLUVOXAMINA EG [Concomitant]
     Active Substance: FLUVOXAMINE
     Indication: DEPRESSION
     Dosage: 2 DF, UNK
     Route: 048
  4. LORAZEPAM. [Suspect]
     Active Substance: LORAZEPAM
     Indication: ANXIETY
     Dosage: 10 DF,
     Dates: start: 20180411, end: 20180411
  5. DALMADORM [Concomitant]
     Active Substance: FLURAZEPAM HYDROCHLORIDE
     Indication: ANXIETY
     Dosage: 1 DF, UNK
     Route: 048
  6. ALPRAZOLAM 1 A PHARMA [Concomitant]
     Indication: ANXIETY
     Dosage: 3 DF, UNK
     Route: 048
  7. LEVOPRAID                          /00314301/ [Concomitant]
     Active Substance: SULPIRIDE
     Indication: ANXIETY
     Dosage: 3 GTT, UNK
     Route: 048
  8. OLANZAPINA ACTAVIS [Concomitant]
     Active Substance: OLANZAPINE
     Indication: PSYCHOTIC DISORDER
     Route: 048

REACTIONS (2)
  - Sopor [Recovered/Resolved]
  - Drug abuse [Recovered/Resolved]

NARRATIVE: CASE EVENT DATE: 20180411
